FAERS Safety Report 24946619 (Version 1)
Quarter: 2025Q1

REPORT INFORMATION
  Report Type: Spontaneous
  Country: US (occurrence: US)
  Receive Date: 20250210
  Receipt Date: 20250210
  Transmission Date: 20250409
  Serious: Yes (Death, Other)
  Sender: NOVO NORDISK
  Company Number: US-NOVOPROD-1364870

PATIENT
  Age: 66 Year
  Sex: Female

DRUGS (1)
  1. RIVFLOZA [Suspect]
     Active Substance: NEDOSIRAN SODIUM
     Indication: Primary hyperoxaluria
     Dosage: 160 MG, QM
     Route: 058
     Dates: start: 202406

REACTIONS (3)
  - Death [Fatal]
  - Influenza [Unknown]
  - Inappropriate schedule of product administration [Unknown]

NARRATIVE: CASE EVENT DATE: 20240601
